FAERS Safety Report 18169034 (Version 6)
Quarter: 2021Q2

REPORT INFORMATION
  Report Type: Spontaneous
  Country: US (occurrence: US)
  Receive Date: 20200819
  Receipt Date: 20210611
  Transmission Date: 20210717
  Serious: No
  Sender: FDA-Public Use
  Company Number: US-PFIZER INC-2020319461

PATIENT
  Age: 74 Year
  Sex: Female

DRUGS (2)
  1. IBRANCE [Suspect]
     Active Substance: PALBOCICLIB
     Dosage: 125 MG
  2. IBRANCE [Suspect]
     Active Substance: PALBOCICLIB
     Dosage: 75 MG
     Dates: start: 20200629

REACTIONS (7)
  - Pain [Recovered/Resolved]
  - Red blood cell count decreased [Unknown]
  - Neoplasm progression [Unknown]
  - Product dispensing error [Unknown]
  - Anaemia [Unknown]
  - Musculoskeletal discomfort [Unknown]
  - White blood cell count decreased [Unknown]
